FAERS Safety Report 24636656 (Version 1)
Quarter: 2024Q4

REPORT INFORMATION
  Report Type: Spontaneous
  Country: US (occurrence: None)
  Receive Date: 20241119
  Receipt Date: 20241119
  Transmission Date: 20250115
  Serious: Yes (Hospitalization)
  Sender: Public
  Company Number: None

PATIENT
  Age: 29 Year
  Sex: Male
  Weight: 67.6 kg

DRUGS (4)
  1. CISPLATIN [Suspect]
     Active Substance: CISPLATIN
     Dates: end: 20220909
  2. FILGRASTIM [Suspect]
     Active Substance: FILGRASTIM
     Dates: end: 20220909
  3. IFOSFAMIDE [Suspect]
     Active Substance: IFOSFAMIDE
     Dates: end: 20220909
  4. TAXOL [Suspect]
     Active Substance: PACLITAXEL
     Dates: end: 20220905

REACTIONS (2)
  - Febrile neutropenia [None]
  - C-reactive protein increased [None]

NARRATIVE: CASE EVENT DATE: 20220913
